FAERS Safety Report 7893337-5 (Version None)
Quarter: 2011Q4

REPORT INFORMATION
  Report Type: 
  Country: None (occurrence: None)
  Receive Date: 20111104
  Receipt Date: 20111021
  Transmission Date: 20120403
  Serious: Yes (Other)
  Sender: FDA-Public Use
  Company Number: AR-AMGEN-ARGSP2011050016

PATIENT
  Age: 68 Year
  Sex: Female
  Weight: 67.5 kg

DRUGS (5)
  1. CALCIUM [Concomitant]
     Dosage: UNK
     Route: 048
  2. LEVOTHYROXINE SODIUM [Concomitant]
     Dosage: UNK
     Route: 048
  3. LEFLUNOMIDE [Concomitant]
     Dosage: UNK
     Route: 048
  4. HYDROXYCHLOROQUINE SULFATE [Concomitant]
     Dosage: UNK
     Route: 048
  5. ENBREL [Suspect]
     Indication: RHEUMATOID ARTHRITIS
     Dosage: 50 MG, WEEKLY
     Route: 058
     Dates: start: 20090420, end: 20110601

REACTIONS (2)
  - DIVERTICULUM [None]
  - WHITE BLOOD CELL COUNT DECREASED [None]
